FAERS Safety Report 8937123 (Version 1)
Quarter: 2012Q4

REPORT INFORMATION
  Report Type: Spontaneous
  Country: US (occurrence: None)
  Receive Date: 20121128
  Receipt Date: 20121128
  Transmission Date: 20130627
  Serious: Yes (Other)
  Sender: FDA-Public Use
  Company Number: None

PATIENT
  Age: 54 Year
  Sex: Male
  Weight: 65.77 kg

DRUGS (1)
  1. ISENTRESS [Suspect]
     Indication: HIV INFECTION
     Dates: start: 20100206, end: 20121116

REACTIONS (12)
  - Skin exfoliation [None]
  - Skin ulcer [None]
  - Impaired healing [None]
  - Abdominal pain upper [None]
  - Nausea [None]
  - Chromaturia [None]
  - Fatigue [None]
  - Back pain [None]
  - Dysphagia [None]
  - Headache [None]
  - Oral pain [None]
  - Gingival pain [None]
